FAERS Safety Report 5536360-8 (Version None)
Quarter: 2007Q4

REPORT INFORMATION
  Report Type: 
  Country: None (occurrence: None)
  Receive Date: 20071206
  Receipt Date: 20071125
  Transmission Date: 20080405
  Serious: Yes (Hospitalization, Other)
  Sender: FDA-Public Use
  Company Number: US-PFIZER INC-2007099399

PATIENT
  Sex: Female
  Weight: 59 kg

DRUGS (4)
  1. SUTENT [Suspect]
     Indication: RENAL CELL CARCINOMA STAGE UNSPECIFIED
     Dates: start: 20071018, end: 20071125
  2. LEXAPRO [Concomitant]
  3. METOPROLOL [Concomitant]
  4. SYNTHROID [Concomitant]

REACTIONS (9)
  - BRAIN OEDEMA [None]
  - DIARRHOEA [None]
  - DISEASE PROGRESSION [None]
  - DYSPEPSIA [None]
  - GASTROOESOPHAGEAL REFLUX DISEASE [None]
  - HYPERTENSION [None]
  - RENAL CELL CARCINOMA STAGE UNSPECIFIED [None]
  - SUPRAVENTRICULAR TACHYCARDIA [None]
  - VOMITING [None]
